FAERS Safety Report 10685830 (Version 1)
Quarter: 2014Q4

REPORT INFORMATION
  Report Type: Spontaneous
  Country: US (occurrence: US)
  Receive Date: 20141231
  Receipt Date: 20141231
  Transmission Date: 20150529
  Serious: Yes (Other)
  Sender: FDA-Public Use
  Company Number: US-ABBVIE-14P-163-1326373-00

PATIENT
  Sex: Female

DRUGS (6)
  1. SULFONAMIDES [Concomitant]
     Active Substance: UNSPECIFIED INGREDIENT
     Indication: PRODUCT USED FOR UNKNOWN INDICATION
  2. HUMIRA [Suspect]
     Active Substance: ADALIMUMAB
     Indication: PRODUCT USED FOR UNKNOWN INDICATION
     Route: 065
  3. MERCAPTOPURIN [Concomitant]
     Indication: PRODUCT USED FOR UNKNOWN INDICATION
  4. AZA [Concomitant]
     Indication: PRODUCT USED FOR UNKNOWN INDICATION
  5. DICLO [Concomitant]
     Active Substance: DICLOFENAC SODIUM
     Indication: PRODUCT USED FOR UNKNOWN INDICATION
  6. METHOTREXATE [Concomitant]
     Active Substance: METHOTREXATE
     Indication: PRODUCT USED FOR UNKNOWN INDICATION

REACTIONS (7)
  - Hip arthroplasty [Unknown]
  - Arthritis [Unknown]
  - Eczema [Unknown]
  - Spinal operation [Unknown]
  - Infection [Unknown]
  - Psoriasis [Unknown]
  - Road traffic accident [Unknown]
